FAERS Safety Report 21240911 (Version 1)
Quarter: 2022Q3

REPORT INFORMATION
  Report Type: Spontaneous
  Country: US (occurrence: None)
  Receive Date: 20220822
  Receipt Date: 20220822
  Transmission Date: 20221027
  Serious: Yes (Hospitalization)
  Sender: FDA-Public Use
  Company Number: None

PATIENT
  Age: 14 Year
  Sex: Female

DRUGS (1)
  1. PAXLOVID [Suspect]
     Active Substance: NIRMATRELVIR\RITONAVIR
     Indication: COVID-19
     Route: 048
     Dates: start: 20220813, end: 20220817

REACTIONS (6)
  - Acute kidney injury [None]
  - Product use issue [None]
  - Drug monitoring procedure not performed [None]
  - Toxicity to various agents [None]
  - Urine output decreased [None]
  - Drug level decreased [None]

NARRATIVE: CASE EVENT DATE: 20220817
